FAERS Safety Report 6335853-3 (Version None)
Quarter: 2009Q3

REPORT INFORMATION
  Report Type: 
  Country: None (occurrence: None)
  Receive Date: 20090828
  Receipt Date: 20090818
  Transmission Date: 20100115
  Serious: Yes (Hospitalization)
  Sender: FDA-Public Use
  Company Number: MOZO-1000230

PATIENT
  Sex: Male

DRUGS (1)
  1. PLERIXAFOR (PLERIXAFOR) SOLUTION FOR INJECTION [Suspect]
     Indication: HAEMATOPOIETIC STEM CELL MOBILISATION
     Dosage: SUBCUTANEOUS
     Route: 058
     Dates: start: 20090703, end: 20090703

REACTIONS (2)
  - APHERESIS [None]
  - DYSPNOEA [None]
